FAERS Safety Report 19914376 (Version 2)
Quarter: 2021Q4

REPORT INFORMATION
  Report Type: Report from Study
  Country: US (occurrence: US)
  Receive Date: 20211004
  Receipt Date: 20211101
  Transmission Date: 20220304
  Serious: Yes (Other)
  Sender: FDA-Public Use
  Company Number: US-BAUSCH-BL-2021-033205

PATIENT
  Age: 55 Year
  Sex: Female
  Weight: 73 kg

DRUGS (41)
  1. XIFAXAN [Suspect]
     Active Substance: RIFAXIMIN
     Indication: Non-alcoholic steatohepatitis
     Route: 048
  2. XIFAXAN [Suspect]
     Active Substance: RIFAXIMIN
     Indication: Hepatic encephalopathy
  3. XANAX [Concomitant]
     Active Substance: ALPRAZOLAM
     Indication: Product used for unknown indication
     Dosage: AS NEEDED
     Route: 048
  4. SYMBICORT [Concomitant]
     Active Substance: BUDESONIDE\FORMOTEROL FUMARATE DIHYDRATE
     Indication: Product used for unknown indication
     Dosage: 160/4.5 MCG, INHALE 1 PUFF INTO THE LUNGS 2 TIMES DAILY
     Route: 055
  5. TUMS [Concomitant]
     Active Substance: CALCIUM CARBONATE
     Indication: Dyspepsia
     Dosage: AS NEEDED
     Route: 048
  6. PLAVIX [Concomitant]
     Active Substance: CLOPIDOGREL BISULFATE
     Indication: Product used for unknown indication
     Dosage: 120 TABLET
     Route: 048
  7. FLEXERIL [Concomitant]
     Active Substance: CYCLOBENZAPRINE HYDROCHLORIDE
     Indication: Product used for unknown indication
     Dosage: AS NEEDED
     Route: 048
  8. JARDIANCE [Concomitant]
     Active Substance: EMPAGLIFLOZIN
     Indication: Product used for unknown indication
     Route: 048
  9. TRICOR [Concomitant]
     Active Substance: FENOFIBRATE
     Indication: Product used for unknown indication
     Route: 048
  10. FERROUS SULFATE [Concomitant]
     Active Substance: FERROUS SULFATE
     Indication: Product used for unknown indication
     Dosage: DAILY WITH BREAKFAST
     Route: 048
  11. PROZAC [Concomitant]
     Active Substance: FLUOXETINE HYDROCHLORIDE
     Indication: Product used for unknown indication
     Route: 048
  12. LASIX [Concomitant]
     Active Substance: FUROSEMIDE
     Indication: Product used for unknown indication
     Route: 048
  13. LASIX [Concomitant]
     Active Substance: FUROSEMIDE
     Route: 048
  14. NORCO [Concomitant]
     Active Substance: ACETAMINOPHEN\HYDROCODONE BITARTRATE
     Indication: Pain
     Dosage: 10-325 MG/TAB, EVERY 4 HOURS AS NEEDED
     Route: 048
  15. NORCO [Concomitant]
     Active Substance: ACETAMINOPHEN\HYDROCODONE BITARTRATE
     Dosage: 10-325 MG/TAB, EVERY 6 HOURS AS NEEDED
     Route: 048
  16. PROVENTIL [Concomitant]
     Active Substance: ALBUTEROL
     Indication: Product used for unknown indication
     Dosage: PUFF INHALER, INHALED 2 PUFFS INTO THE LUNG EVERY 6 HOURS AS NEEDED.
     Route: 055
  17. NOVOLOG [Concomitant]
     Active Substance: INSULIN ASPART
     Indication: Product used for unknown indication
     Dosage: 100 UNIT/ML, INJECT 10-35 UNIT INTO THE SKIN 4X DAILY AFTER BREAKFAST, LUNCH, DINNER AND AT BEDTIME
  18. BASAGLAR KWIKPEN [Concomitant]
     Active Substance: INSULIN GLARGINE
     Indication: Product used for unknown indication
     Dosage: INJECT 30 UNITS INTO THE SKIN AT BEDTIME
  19. LACTULOSE [Concomitant]
     Active Substance: LACTULOSE
     Indication: Product used for unknown indication
     Dosage: 10 GM/15ML, TAKE 45 ML 3 TO 4 TIMES DAILY TO MAINTAIN 3-4 BOWEL MOVEMENT DAILY
  20. LACTULOSE [Concomitant]
     Active Substance: LACTULOSE
     Dosage: 10 GM/15ML, TAKE 45 ML 3 TO 4 TIMES DAILY TO MAINTAIN 3-4 BOWEL MOVEMENT DAILY
  21. SYNTHROID [Concomitant]
     Active Substance: LEVOTHYROXINE SODIUM
     Indication: Product used for unknown indication
     Route: 048
  22. MEVACOR [Concomitant]
     Active Substance: LOVASTATIN
     Indication: Product used for unknown indication
     Dosage: AT BEDTIME
     Route: 048
  23. GLUCOPHAGE XR [Concomitant]
     Active Substance: METFORMIN HYDROCHLORIDE
     Indication: Product used for unknown indication
     Dosage: TAKE 1000 MG, 2X DAILY BEFORE BREAKFAST AND DINNER
     Route: 048
  24. PAMELOR [Concomitant]
     Active Substance: NORTRIPTYLINE HYDROCHLORIDE
     Indication: Product used for unknown indication
     Dosage: AT BEDTIME
     Route: 048
  25. PROTONIX [Concomitant]
     Active Substance: PANTOPRAZOLE SODIUM
     Indication: Product used for unknown indication
     Route: 048
  26. MIRALAX [Concomitant]
     Active Substance: POLYETHYLENE GLYCOL 3350
     Indication: Product used for unknown indication
     Dosage: 17 GRAM PACKET, TAKE 1 PACKET DAILY
     Route: 048
  27. MICRO K [Concomitant]
     Indication: Product used for unknown indication
     Route: 048
  28. COMPAZINE [Concomitant]
     Active Substance: PROCHLORPERAZINE MALEATE
     Indication: Nausea
     Dosage: AS NEEDED
     Route: 048
  29. COMPAZINE [Concomitant]
     Active Substance: PROCHLORPERAZINE MALEATE
     Indication: Vomiting
  30. TOPROL XL [Concomitant]
     Active Substance: METOPROLOL SUCCINATE
     Indication: Product used for unknown indication
     Dosage: EXTENDED-RELEASE TABLET
     Route: 048
  31. ALDACTONE [Concomitant]
     Active Substance: SPIRONOLACTONE
     Indication: Product used for unknown indication
     Route: 048
  32. CARAFATE [Concomitant]
     Active Substance: SUCRALFATE
     Indication: Product used for unknown indication
     Dosage: 4X DAILY BEFORE BREAKFAST, LUNCH, DINNER AND AT BEDTIME
     Route: 048
  33. TYLENOL [Concomitant]
     Active Substance: ACETAMINOPHEN
     Indication: Product used for unknown indication
     Dosage: AS NEEDED
     Route: 048
  34. LIPITOR [Concomitant]
     Active Substance: ATORVASTATIN CALCIUM
     Indication: Product used for unknown indication
     Dosage: AT BEDTIME
     Route: 048
  35. ALBUTEROL [Concomitant]
     Active Substance: ALBUTEROL
     Indication: Product used for unknown indication
     Dosage: INHALATION ROUTE, EVERY 4 HOURS AS NEEDED.
     Route: 055
  36. ROCEPHIN [Concomitant]
     Active Substance: CEFTRIAXONE SODIUM
     Indication: Product used for unknown indication
     Route: 042
  37. DEXTROSE [Concomitant]
     Active Substance: DEXTROSE
     Indication: Product used for unknown indication
     Dosage: 50%, 25-50 ML, EVERY 30 MIN AS NEEDED.
     Route: 042
  38. ADVAIR HFA [Concomitant]
     Active Substance: FLUTICASONE PROPIONATE\SALMETEROL XINAFOATE
     Indication: Product used for unknown indication
     Dosage: 500-50 MCG, 1 PUFF
     Route: 055
  39. LANTUS [Concomitant]
     Active Substance: INSULIN GLARGINE
     Indication: Product used for unknown indication
     Dosage: 16 UNITS
     Route: 058
  40. INSULIN LISPRO [Concomitant]
     Active Substance: INSULIN LISPRO
     Indication: Product used for unknown indication
     Dosage: 1-21 UNITS, EVERY SIX HOURS
     Route: 058
  41. MAGNESIUM SULFATE [Concomitant]
     Active Substance: MAGNESIUM SULFATE
     Indication: Product used for unknown indication
     Dosage: 2 G IN TOTAL VOLUME 50 ML IVPB, ONCE
     Route: 042

REACTIONS (4)
  - Melaena [Unknown]
  - Lethargy [Unknown]
  - Confusional state [Unknown]
  - Hypersomnia [Unknown]

NARRATIVE: CASE EVENT DATE: 20210901
